FAERS Safety Report 6964495-1 (Version None)
Quarter: 2010Q3

REPORT INFORMATION
  Report Type: 
  Country: None (occurrence: None)
  Receive Date: 20100903
  Receipt Date: 20100824
  Transmission Date: 20110219
  Serious: Yes (Other)
  Sender: FDA-Public Use
  Company Number: US-PFIZER INC-2010107360

PATIENT
  Sex: Female

DRUGS (1)
  1. NEURONTIN [Suspect]
     Dosage: UNK

REACTIONS (7)
  - ABASIA [None]
  - BURNING SENSATION [None]
  - GAIT DISTURBANCE [None]
  - HYPOAESTHESIA [None]
  - LYMPHOEDEMA [None]
  - PAIN IN EXTREMITY [None]
  - SOMNOLENCE [None]
